FAERS Safety Report 4731168-5 (Version None)
Quarter: 2005Q3

REPORT INFORMATION
  Report Type: 
  Country: None (occurrence: None)
  Receive Date: 20050802
  Receipt Date: 20050720
  Transmission Date: 20060218
  Serious: No
  Sender: FDA-Public Use
  Company Number: IT-BOEHRINGER INGELHEIM PHARMACEUTICALS, INC.-2005-DE-02855GD

PATIENT
  Age: 11 Year
  Sex: Female

DRUGS (9)
  1. NEVIRAPINE [Suspect]
     Indication: HIV INFECTION CDC CATEGORY C3
  2. STAVUDINE [Suspect]
     Indication: HIV INFECTION CDC CATEGORY C3
  3. ZIDOVUDINE [Suspect]
     Indication: HIV INFECTION CDC CATEGORY C3
  4. LAMIVUDINE [Suspect]
     Indication: HIV INFECTION CDC CATEGORY C3
  5. DIDANOSINE [Suspect]
     Indication: HIV INFECTION CDC CATEGORY C3
  6. INDINAVIR [Suspect]
     Indication: HIV INFECTION CDC CATEGORY C3
  7. ZALCITABINE [Suspect]
     Indication: HIV INFECTION CDC CATEGORY C3
  8. NELFINAVIR [Suspect]
     Indication: HIV INFECTION CDC CATEGORY C3
  9. RITONAVIR [Suspect]
     Indication: HIV INFECTION CDC CATEGORY C3

REACTIONS (3)
  - CD4 LYMPHOCYTES DECREASED [None]
  - DRUG INEFFECTIVE [None]
  - THERAPY NON-RESPONDER [None]
